FAERS Safety Report 4469672-X (Version None)
Quarter: 2004Q3

REPORT INFORMATION
  Report Type: 
  Country: None (occurrence: None)
  Receive Date: 20040917
  Receipt Date: 20030822
  Transmission Date: 20050211
  Serious: Yes (Hospitalization)
  Sender: FDA-Public Use
  Company Number: 2003-BP-06148BP

PATIENT
  Sex: Female

DRUGS (3)
  1. VIRAMUNE [Suspect]
     Indication: HIV INFECTION
     Dosage: 200 MG (200 MG, 1 IN 1 D), ORAL
     Route: 048
     Dates: start: 20030410, end: 20030422
  2. COMBIVIR [Concomitant]
  3. BIRTH CONTROL PILLS [Concomitant]

REACTIONS (4)
  - BLISTER [None]
  - EYE DISORDER [None]
  - SOFT TISSUE DISORDER [None]
  - TOXIC EPIDERMAL NECROLYSIS [None]
